FAERS Safety Report 9909103 (Version 2)
Quarter: 2014Q1

REPORT INFORMATION
  Report Type: Spontaneous
  Country: FR (occurrence: FR)
  Receive Date: 20140219
  Receipt Date: 20140303
  Transmission Date: 20141002
  Serious: Yes (Hospitalization, Other)
  Sender: FDA-Public Use
  Company Number: FR-INCYTE CORPORATION-2014IN000366

PATIENT
  Age: 60 Year
  Sex: Male

DRUGS (2)
  1. JAKAVI [Suspect]
     Indication: MYELOPROLIFERATIVE DISORDER
     Dosage: 15 MG, BID
     Route: 048
     Dates: start: 201306
  2. LYSINE ACETYLSALICYLIC [Concomitant]
     Dosage: UNK
     Dates: start: 200707

REACTIONS (2)
  - Peripheral artery thrombosis [Recovered/Resolved with Sequelae]
  - Peripheral ischaemia [Recovering/Resolving]
